FAERS Safety Report 18626137 (Version 2)
Quarter: 2020Q4

REPORT INFORMATION
  Report Type: Spontaneous
  Country: JP (occurrence: JP)
  Receive Date: 20201217
  Receipt Date: 20201221
  Transmission Date: 20210114
  Serious: Yes (Life-Threatening, Hospitalization)
  Sender: FDA-Public Use
  Company Number: JP-ROCHE-2734495

PATIENT
  Age: 7 Decade
  Sex: Female

DRUGS (1)
  1. GAZYVA [Suspect]
     Active Substance: OBINUTUZUMAB
     Indication: B-CELL LYMPHOMA
     Dosage: DATE OF MOST RECENT : 30/SEP/2020
     Route: 041
     Dates: start: 20200826

REACTIONS (1)
  - Obliterative bronchiolitis [Not Recovered/Not Resolved]

NARRATIVE: CASE EVENT DATE: 20201019
